FAERS Safety Report 6383323-9 (Version None)
Quarter: 2009Q4

REPORT INFORMATION
  Report Type: 
  Country: None (occurrence: None)
  Receive Date: 20091001
  Receipt Date: 20090921
  Transmission Date: 20100525
  Serious: Yes (Hospitalization)
  Sender: FDA-Public Use
  Company Number: US-BIOGENIDEC-2009BI030039

PATIENT
  Age: 32 Year
  Sex: Female
  Weight: 122 kg

DRUGS (1)
  1. AVONEX [Suspect]
     Indication: MULTIPLE SCLEROSIS
     Route: 030
     Dates: start: 20090401

REACTIONS (4)
  - EYE HAEMORRHAGE [None]
  - LOCALISED INFECTION [None]
  - PYREXIA [None]
  - THERMAL BURN [None]
